FAERS Safety Report 24540355 (Version 1)
Quarter: 2024Q4

REPORT INFORMATION
  Report Type: Spontaneous
  Country: US (occurrence: None)
  Receive Date: 20241023
  Receipt Date: 20241023
  Transmission Date: 20250115
  Serious: No
  Sender: USAntibiotics
  Company Number: US-USAntibiotics-000345

PATIENT
  Age: 17 Year
  Sex: Female
  Weight: 90.7 kg

DRUGS (2)
  1. AUGMENTIN [Suspect]
     Active Substance: AMOXICILLIN\CLAVULANATE POTASSIUM
     Indication: Respiratory disorder
     Dates: start: 20240819
  2. PLAN B [Suspect]
     Active Substance: LEVONORGESTREL
     Indication: Post coital contraception
     Dosage: 1.5 MG X 1 DOSE
     Route: 048
     Dates: start: 20240818

REACTIONS (3)
  - Dizziness [Recovered/Resolved]
  - Dysmenorrhoea [Not Recovered/Not Resolved]
  - Nausea [Recovered/Resolved]

NARRATIVE: CASE EVENT DATE: 20240825
